FAERS Safety Report 10442774 (Version 2)
Quarter: 2015Q1

REPORT INFORMATION
  Report Type: Spontaneous
  Country: US (occurrence: US)
  Receive Date: 20140909
  Receipt Date: 20150217
  Transmission Date: 20150720
  Serious: Yes (Hospitalization)
  Sender: FDA-Public Use
  Company Number: US-PFIZER INC-2014246782

PATIENT
  Age: 76 Year
  Sex: Male
  Weight: 147 kg

DRUGS (3)
  1. MYSOLINE [Suspect]
     Active Substance: PRIMIDONE
     Dosage: UNK
  2. LYRICA [Concomitant]
     Active Substance: PREGABALIN
     Indication: NEUROPATHY PERIPHERAL
     Dosage: UNK
  3. DILANTIN [Suspect]
     Active Substance: PHENYTOIN
     Indication: SEIZURE
     Dosage: UNK, 3X/DAY

REACTIONS (3)
  - Hip fracture [Unknown]
  - Limb discomfort [Unknown]
  - Accident [Unknown]
